FAERS Safety Report 16575762 (Version 1)
Quarter: 2019Q3

REPORT INFORMATION
  Report Type: Report from Study
  Country: US (occurrence: US)
  Receive Date: 20190716
  Receipt Date: 20190716
  Transmission Date: 20191004
  Serious: Yes (Other)
  Sender: FDA-Public Use
  Company Number: US-PFIZER INC-2019047611

PATIENT
  Age: 61 Year
  Sex: Female

DRUGS (1)
  1. IBRANCE [Suspect]
     Active Substance: PALBOCICLIB
     Indication: BREAST CANCER FEMALE
     Dosage: 100 MG, CYCLIC (DAILY 21 DAYS ON/7 DAYS OFF)
     Route: 048
     Dates: start: 20181224

REACTIONS (9)
  - Condition aggravated [Not Recovered/Not Resolved]
  - Haemoglobin decreased [Unknown]
  - Abdominal pain [Recovering/Resolving]
  - Fatigue [Not Recovered/Not Resolved]
  - Flatulence [Unknown]
  - Red blood cell count decreased [Not Recovered/Not Resolved]
  - Musculoskeletal stiffness [Not Recovered/Not Resolved]
  - Neuropathy peripheral [Not Recovered/Not Resolved]
  - White blood cell count decreased [Not Recovered/Not Resolved]
